FAERS Safety Report 25765158 (Version 4)
Quarter: 2025Q4

REPORT INFORMATION
  Report Type: Spontaneous
  Country: JP (occurrence: JP)
  Receive Date: 20250905
  Receipt Date: 20251230
  Transmission Date: 20260117
  Serious: Yes (Hospitalization, Disabling, Congenital Anomaly, Other)
  Sender: NOVARTIS
  Company Number: JP-002147023-NVSJ2025JP008803

PATIENT
  Sex: Female
  Weight: 1.322 kg

DRUGS (12)
  1. ELTROMBOPAG OLAMINE [Suspect]
     Active Substance: ELTROMBOPAG OLAMINE
     Indication: Foetal exposure during pregnancy
     Dosage: 12.5 MG
     Route: 064
     Dates: start: 20240924, end: 20240929
  2. ELTROMBOPAG OLAMINE [Suspect]
     Active Substance: ELTROMBOPAG OLAMINE
     Dosage: MATERNAL  EXPOSURE DURING  PREGNANCY: 25MG
     Route: 064
     Dates: start: 20240930, end: 20250227
  3. ELTROMBOPAG OLAMINE [Suspect]
     Active Substance: ELTROMBOPAG OLAMINE
     Dosage: MATERNAL  EXPOSURE DURING  PREGNANCY: 12.5 MG, QD
     Route: 064
     Dates: start: 20250508, end: 20250514
  4. ELTROMBOPAG OLAMINE [Suspect]
     Active Substance: ELTROMBOPAG OLAMINE
     Dosage: MATERNAL  EXPOSURE DURING  PREGNANCY: 25MG
     Route: 064
     Dates: start: 20250515, end: 20250521
  5. ELTROMBOPAG OLAMINE [Suspect]
     Active Substance: ELTROMBOPAG OLAMINE
     Dosage: MATERNAL  EXPOSURE DURING  PREGNANCY: 50MG
     Route: 064
     Dates: start: 20250522, end: 20250709
  6. ELTROMBOPAG OLAMINE [Suspect]
     Active Substance: ELTROMBOPAG OLAMINE
     Dosage: MATERNAL  EXPOSURE DURING  PREGNANCY: 25MG
     Route: 064
     Dates: start: 20250710, end: 20250807
  7. ELTROMBOPAG OLAMINE [Suspect]
     Active Substance: ELTROMBOPAG OLAMINE
     Dosage: MATERNAL  EXPOSURE DURING  PREGNANCY: 12.5 MG
     Route: 064
     Dates: start: 20250808, end: 20250829
  8. PREDNISOLONE [Concomitant]
     Active Substance: PREDNISOLONE
     Indication: Foetal exposure during pregnancy
     Dosage: MATERNAL  EXPOSURE DURING  PREGNANCY:20 MG
     Route: 064
     Dates: start: 20240913
  9. MIYA-BM [Concomitant]
     Active Substance: CLOSTRIDIUM BUTYRICUM SPORES STRAIN M-55
     Indication: Foetal exposure during pregnancy
     Dosage: MATERNAL  EXPOSURE DURING  PREGNANCY:1 G, TID
     Route: 064
     Dates: start: 20240913
  10. FLUCONAZOLE [Concomitant]
     Active Substance: FLUCONAZOLE
     Indication: Foetal exposure during pregnancy
     Dosage: MATERNAL  EXPOSURE DURING  PREGNANCY:100 MG
     Route: 064
     Dates: start: 20240913, end: 20250303
  11. SULFAMETHOXAZOLE\TRIMETHOPRIM [Concomitant]
     Active Substance: SULFAMETHOXAZOLE\TRIMETHOPRIM
     Indication: Foetal exposure during pregnancy
     Dosage: MATERNAL  EXPOSURE DURING  PREGNANCY: 1 DOSAGE FORM
     Route: 064
     Dates: start: 20240918, end: 20250303
  12. RABEPRAZOLE SODIUM [Concomitant]
     Active Substance: RABEPRAZOLE SODIUM
     Indication: Foetal exposure during pregnancy
     Dosage: MATERNAL  EXPOSURE DURING  PREGNANCY: 10 MG
     Route: 064
     Dates: start: 20240914

REACTIONS (10)
  - Cerebral haemorrhage foetal [Recovering/Resolving]
  - Cerebral artery embolism [Recovering/Resolving]
  - Disseminated intravascular coagulation [Recovering/Resolving]
  - Thrombosis [Recovering/Resolving]
  - Foetal hypokinesia [Recovering/Resolving]
  - Premature baby [Recovering/Resolving]
  - Hypothyroidism [Recovering/Resolving]
  - Low birth weight baby [Recovering/Resolving]
  - Umbilical cord vascular disorder [Unknown]
  - Foetal exposure during pregnancy [Unknown]

NARRATIVE: CASE EVENT DATE: 20250829
